FAERS Safety Report 19598683 (Version 1)
Quarter: 2021Q3

REPORT INFORMATION
  Report Type: Spontaneous
  Country: US (occurrence: US)
  Receive Date: 20210722
  Receipt Date: 20210722
  Transmission Date: 20211014
  Serious: No
  Sender: FDA-Public Use
  Company Number: None

PATIENT
  Age: 73 Year
  Sex: Male

DRUGS (1)
  1. METOLAZONE (METOLAZONE 2.5MG TAB) [Suspect]
     Active Substance: METOLAZONE
     Indication: HYPERTENSION
     Route: 048
     Dates: start: 20210407, end: 20210511

REACTIONS (3)
  - Hydronephrosis [None]
  - Heart rate decreased [None]
  - Acute kidney injury [None]

NARRATIVE: CASE EVENT DATE: 20210506
